FAERS Safety Report 6135080-9 (Version None)
Quarter: 2009Q1

REPORT INFORMATION
  Report Type: 
  Country: None (occurrence: None)
  Receive Date: 20090327
  Receipt Date: 20090319
  Transmission Date: 20090719
  Serious: Yes (Other)
  Sender: FDA-Public Use
  Company Number: US-ASTRAZENECA-2009UW07667

PATIENT
  Age: 58 Year
  Sex: Male

DRUGS (6)
  1. CRESTOR [Suspect]
     Route: 048
  2. EFFEXOR XR [Concomitant]
  3. WARFARIN SODIUM [Concomitant]
  4. ALPRAZOLAM [Concomitant]
  5. PANTOPRAZOLE SODIUM [Concomitant]
  6. RAMIPRIL [Concomitant]

REACTIONS (1)
  - TOXIC NEUROPATHY [None]
